FAERS Safety Report 5070968-1 (Version None)
Quarter: 2006Q3

REPORT INFORMATION
  Report Type: 
  Country: None (occurrence: None)
  Receive Date: 20060803
  Receipt Date: 20060803
  Transmission Date: 20061208
  Serious: Yes (Other)
  Sender: FDA-Public Use
  Company Number: None

PATIENT
  Age: 51 Year
  Sex: Female

DRUGS (2)
  1. POLYETHYLENE GLYCOL 3350 POWDER FOR SOLUTION [Suspect]
     Indication: CONSTIPATION
     Dosage: MIX 1 TO 2 CAPFULS INTO 8 OUNCES OF WATER AS DIRECTED, DAILY
     Dates: start: 20060709
  2. PAROXETINE HCL [Concomitant]

REACTIONS (7)
  - BOWEL MOVEMENT IRREGULARITY [None]
  - DIARRHOEA [None]
  - DRUG INEFFECTIVE [None]
  - DYSGEUSIA [None]
  - FLATULENCE [None]
  - GASTROINTESTINAL DISORDER [None]
  - PHARMACEUTICAL PRODUCT COMPLAINT [None]
